FAERS Safety Report 8982589 (Version 2)
Quarter: 2013Q1

REPORT INFORMATION
  Report Type: Spontaneous
  Country: AU (occurrence: AU)
  Receive Date: 20121221
  Receipt Date: 20130123
  Transmission Date: 20140127
  Serious: Yes (Death)
  Sender: FDA-Public Use
  Company Number: AU-B.I. PHARMACEUTICALS,INC./RIDGEFIELD-2012-AU-02009AU

PATIENT
  Sex: Male

DRUGS (9)
  1. PRADAXA [Suspect]
     Indication: CEREBROVASCULAR ACCIDENT PROPHYLAXIS
     Dosage: 220 MG
     Dates: start: 20111007
  2. PRADAXA [Suspect]
     Indication: ATRIAL FIBRILLATION
  3. METOPROLOL-BC [Concomitant]
     Dosage: 100 MG
  4. LIPITOR [Concomitant]
     Dosage: 40 MG
  5. ZOLADEX [Concomitant]
  6. XALATAN [Concomitant]
     Dosage: 50 MCG/ML
  7. SOLONE [Concomitant]
  8. SOMAC [Concomitant]
     Dosage: 40 MG
  9. OSTELIN VITAMIN D [Concomitant]
     Dosage: 50 MCG

REACTIONS (1)
  - Prostate cancer metastatic [Fatal]
